FAERS Safety Report 4482328-2 (Version None)
Quarter: 2004Q4

REPORT INFORMATION
  Report Type: 
  Country: None (occurrence: None)
  Receive Date: 20041022
  Receipt Date: 20040909
  Transmission Date: 20050328
  Serious: Yes (Other)
  Sender: FDA-Public Use
  Company Number: GB-ROCHE-380080

PATIENT
  Age: 41 Year
  Sex: Female

DRUGS (2)
  1. ROACCUTANE [Suspect]
     Route: 048
     Dates: start: 20011207, end: 20040815
  2. ROACCUTANE [Suspect]
     Route: 048

REACTIONS (4)
  - DYSGEUSIA [None]
  - LIP BLISTER [None]
  - ONYCHORRHEXIS [None]
  - ORAL PAIN [None]
